FAERS Safety Report 7069233 (Version 2)
Quarter: 2014Q2

REPORT INFORMATION
  Report Type: Spontaneous
  Country: US (occurrence: None)
  Receive Date: 20090724
  Receipt Date: 20140430
  Transmission Date: 20141212
  Serious: Yes (Hospitalization, Other)
  Sender: FDA-Public Use
  Company Number: 2009S1005551

PATIENT
  Age: 67 Year
  Sex: Male

DRUGS (7)
  1. FLEET PHOSPHO-SODA ORAL SALINE LAXATIVE, GINGER-LEMON FLAVOR (ORAL SOLUTION) [Suspect]
     Indication: COLONOSCOPY
     Route: 048
     Dates: start: 20071231, end: 20071231
  2. ZYRTEC (CETIRIZINE HYDROCHLORIDE) [Concomitant]
  3. ATENOLOL (ATENOLOL) [Concomitant]
  4. LOVASTATIN (LOVASTATIN) [Concomitant]
  5. PAXIL (PAROXETINE HYDROCHLORIDE) [Concomitant]
  6. PRILOSEC (OMEPRAZOLE) [Concomitant]
  7. FOSAMAX (ALENDRONATE SODIUM) [Concomitant]

REACTIONS (19)
  - Dialysis [None]
  - Renal failure chronic [None]
  - Renal disorder [None]
  - Procedural hypotension [None]
  - Renal tubular necrosis [None]
  - Clostridium difficile infection [None]
  - Benign prostatic hyperplasia [None]
  - Urinary retention postoperative [None]
  - Dehydration [None]
  - Metabolic acidosis [None]
  - Anaemia [None]
  - Intestinal obstruction [None]
  - Adhesion [None]
  - Treatment noncompliance [None]
  - Hyperparathyroidism secondary [None]
  - Bronchitis [None]
  - Pneumonia [None]
  - Abdominal hernia [None]
  - Nephrosclerosis [None]
